FAERS Safety Report 19205939 (Version 1)
Quarter: 2021Q2

REPORT INFORMATION
  Report Type: Spontaneous
  Country: FR (occurrence: FR)
  Receive Date: 20210503
  Receipt Date: 20210503
  Transmission Date: 20210717
  Serious: Yes (Life-Threatening)
  Sender: FDA-Public Use
  Company Number: FR-PFIZER INC-2021430189

PATIENT
  Age: 42 Year
  Sex: Male

DRUGS (9)
  1. TERALITHE [Suspect]
     Active Substance: LITHIUM CARBONATE
     Indication: CHILDHOOD PSYCHOSIS
     Dosage: 2.5 DF, 1X/DAY
     Route: 048
     Dates: start: 20200309, end: 20210312
  2. BACTRIM [Suspect]
     Active Substance: SULFAMETHOXAZOLE\TRIMETHOPRIM
     Indication: EAR INFECTION
     Dosage: 2 DF, DAILY
     Route: 048
     Dates: start: 20210219, end: 20210301
  3. TOVIAZ [Suspect]
     Active Substance: FESOTERODINE FUMARATE
     Dosage: 4 MG, 1X/DAY
     Route: 048
     Dates: start: 20191231
  4. PERINDOPRIL [Suspect]
     Active Substance: PERINDOPRIL
     Dosage: UNK
     Route: 048
     Dates: start: 20200101
  5. NALTREXONE [Suspect]
     Active Substance: NALTREXONE
     Dosage: 50 DF, 1X/DAY
     Route: 048
     Dates: start: 20200323
  6. HALDOL [Suspect]
     Active Substance: HALOPERIDOL
     Indication: CHILDHOOD PSYCHOSIS
     Dosage: 20 MG, DAILY
     Route: 048
     Dates: start: 20200319
  7. INDAPAMIDE. [Suspect]
     Active Substance: INDAPAMIDE
     Dosage: UNK
     Route: 048
     Dates: start: 20200101
  8. DIAZEPAM. [Suspect]
     Active Substance: DIAZEPAM
     Indication: MIXED ANXIETY AND DEPRESSIVE DISORDER
     Dosage: 25 MG, DAILY
     Route: 048
     Dates: start: 20201027
  9. CYAMEMAZINE [Suspect]
     Active Substance: CYAMEMAZINE
     Indication: CHILDHOOD PSYCHOSIS
     Dosage: 175 MG, DAILY
     Route: 048
     Dates: start: 20210129, end: 20210301

REACTIONS (1)
  - Subileus [Recovered/Resolved]

NARRATIVE: CASE EVENT DATE: 20210222
